FAERS Safety Report 7496852-1 (Version None)
Quarter: 2011Q2

REPORT INFORMATION
  Report Type: 
  Country: None (occurrence: None)
  Receive Date: 20110523
  Receipt Date: 20110517
  Transmission Date: 20111010
  Serious: Yes (Death, Hospitalization)
  Sender: FDA-Public Use
  Company Number: CA-ABBOTT-11P-028-0722245-00

PATIENT
  Sex: Female

DRUGS (7)
  1. VERPAMIL HCL [Concomitant]
     Indication: PRODUCT USED FOR UNKNOWN INDICATION
     Route: 048
  2. VENTOLIN [Concomitant]
     Indication: PRODUCT USED FOR UNKNOWN INDICATION
     Dosage: EVERY 4 HOURS AS NEEDED
     Route: 055
  3. HUMIRA [Suspect]
     Indication: BONE EROSION
     Route: 058
     Dates: start: 20110107, end: 20110204
  4. HUMIRA [Suspect]
     Indication: RHEUMATOID ARTHRITIS
     Route: 058
     Dates: start: 20070212, end: 20101201
  5. PANTOLOC [Concomitant]
     Indication: PRODUCT USED FOR UNKNOWN INDICATION
     Route: 048
  6. ATROVENT [Concomitant]
     Indication: PRODUCT USED FOR UNKNOWN INDICATION
     Dosage: EVERY 4 HOURS AS NEEDED
     Route: 055
  7. COUMADIN [Concomitant]
     Indication: DEEP VEIN THROMBOSIS
     Dosage: AS PER PTT

REACTIONS (10)
  - HAEMORRHAGE INTRACRANIAL [None]
  - GENERALISED OEDEMA [None]
  - HYPONATRAEMIA [None]
  - DEEP VEIN THROMBOSIS [None]
  - FALL [None]
  - UROSEPSIS [None]
  - HYDRONEPHROSIS [None]
  - RENAL INJURY [None]
  - BRAIN MIDLINE SHIFT [None]
  - GOUT [None]
